FAERS Safety Report 12057893 (Version 2)
Quarter: 2016Q2

REPORT INFORMATION
  Report Type: Report from Study
  Country: US (occurrence: US)
  Receive Date: 20160210
  Receipt Date: 20160415
  Transmission Date: 20160815
  Serious: Yes (Other)
  Sender: FDA-Public Use
  Company Number: US-AMGEN-USASL2016013461

PATIENT
  Age: 28 Year
  Sex: Female
  Weight: 50.34 kg

DRUGS (2)
  1. SULFAZINE EC [Concomitant]
     Active Substance: SULFASALAZINE
     Dosage: 3 TAB, TWICE DAILY
     Dates: end: 201601
  2. ENBREL [Suspect]
     Active Substance: ETANERCEPT
     Indication: RHEUMATOID ARTHRITIS
     Dosage: 50 MG/ML, EVERY WEEK
     Route: 058
     Dates: start: 20151008

REACTIONS (9)
  - Rheumatoid arthritis [Unknown]
  - Oropharyngeal pain [Recovering/Resolving]
  - Eczema [Recovering/Resolving]
  - Pyrexia [Unknown]
  - Tendonitis [Unknown]
  - Rhinorrhoea [Unknown]
  - Nasopharyngitis [Recovered/Resolved]
  - Migraine [Unknown]
  - Tinea infection [Unknown]

NARRATIVE: CASE EVENT DATE: 2016
